FAERS Safety Report 18323371 (Version 1)
Quarter: 2020Q3

REPORT INFORMATION
  Report Type: Spontaneous
  Country: HU (occurrence: HU)
  Receive Date: 20200929
  Receipt Date: 20200929
  Transmission Date: 20201103
  Serious: Yes (Hospitalization)
  Sender: FDA-Public Use
  Company Number: HU-STRIDES ARCOLAB LIMITED-2020SP011506

PATIENT
  Age: 47 Year
  Sex: Female

DRUGS (1)
  1. POTASSIUM CHLORIDE. [Suspect]
     Active Substance: POTASSIUM CHLORIDE
     Indication: PRODUCT USED FOR UNKNOWN INDICATION
     Dosage: UNK,  50 TABLETS
     Route: 065

REACTIONS (6)
  - Stomach mass [Unknown]
  - Bezoar [Unknown]
  - Suicide attempt [Unknown]
  - Toxicity to various agents [Unknown]
  - Overdose [Unknown]
  - Hyperkalaemia [Recovered/Resolved]
